FAERS Safety Report 8615963 (Version 2)
Quarter: 2012Q4

REPORT INFORMATION
  Report Type: 
  Country: US (occurrence: US)
  Receive Date: 20120614
  Receipt Date: 20120927
  Transmission Date: 20130627
  Serious: No
  Sender: FDA-Public Use
  Company Number: US-AMGEN-USASP2012032258

PATIENT
  Age: 72 Year
  Sex: Female

DRUGS (7)
  1. PROLIA [Suspect]
     Indication: OSTEOPOROSIS POSTMENOPAUSAL
     Dosage: 60 mg, q6mo
  2. SIMVASTATIN [Concomitant]
     Dosage: 1 mg, UNK
  3. LISINOPRIL [Concomitant]
     Dosage: 1 mg, UNK
  4. OMEPRAZOLE [Concomitant]
     Dosage: 1 mg, UNK
  5. METOPROLOL [Concomitant]
     Dosage: 2 mg, UNK
  6. LEVOXYL [Concomitant]
     Dosage: 1 mg, UNK
  7. TRAMADOL [Concomitant]
     Dosage: 2 mg, UNK

REACTIONS (4)
  - Pain [Recovering/Resolving]
  - Hypokinesia [Recovering/Resolving]
  - Dysstasia [Not Recovered/Not Resolved]
  - Back pain [Recovering/Resolving]
